FAERS Safety Report 6622030-1 (Version None)
Quarter: 2010Q1

REPORT INFORMATION
  Report Type: 
  Country: None (occurrence: None)
  Receive Date: 20100223
  Receipt Date: 20091210
  Transmission Date: 20100710
  Serious: No
  Sender: FDA-Public Use
  Company Number: 002914

PATIENT
  Sex: Female

DRUGS (2)
  1. CIMZIA [Suspect]
     Indication: CROHN'S DISEASE
     Dosage: 400 MG MONTHLY SUBCUTANEOUS
     Route: 058
     Dates: start: 20090428
  2. METHOTREXATE [Suspect]
     Indication: CROHN'S DISEASE
     Dosage: 25 MG WEEKLY TIMES 4 WEEKS
     Dates: start: 20091106, end: 20091218

REACTIONS (3)
  - ALOPECIA [None]
  - FREQUENT BOWEL MOVEMENTS [None]
  - NAUSEA [None]
